FAERS Safety Report 10085032 (Version 1)
Quarter: 2014Q2

REPORT INFORMATION
  Report Type: Spontaneous
  Country: ES (occurrence: ES)
  Receive Date: 20140417
  Receipt Date: 20140417
  Transmission Date: 20141212
  Serious: Yes (Death, Hospitalization)
  Sender: FDA-Public Use
  Company Number: ES-CELGENEUS-144-50794-14041316

PATIENT
  Age: 76 Year
  Sex: Male

DRUGS (4)
  1. VIDAZA [Suspect]
     Indication: MARROW HYPERPLASIA
     Route: 058
     Dates: start: 20130429
  2. VIDAZA [Suspect]
     Indication: MYELOFIBROSIS
     Route: 041
     Dates: start: 20130617
  3. VIDAZA [Suspect]
     Route: 041
     Dates: start: 20130715
  4. IMIDAPRIL [Concomitant]
     Indication: HYPERTENSION
     Route: 065

REACTIONS (7)
  - Cholecystitis acute [Fatal]
  - Pancytopenia [Unknown]
  - Abdominal pain [Unknown]
  - Diarrhoea [Unknown]
  - Infective myositis [Unknown]
  - Liver function test abnormal [Unknown]
  - Coagulation test abnormal [Unknown]
